FAERS Safety Report 10073807 (Version 12)
Quarter: 2020Q3

REPORT INFORMATION
  Report Type: Report from Study
  Country: None (occurrence: BR)
  Receive Date: 20140411
  Receipt Date: 20200916
  Transmission Date: 20201102
  Serious: Yes (Hospitalization, Other)
  Sender: FDA-Public Use
  Company Number: BR-ABBVIE-10P-020-0675843-00

PATIENT
  Sex: Female
  Weight: 72 kg

DRUGS (49)
  1. PREDNISONE. [Suspect]
     Active Substance: PREDNISONE
     Indication: BONE PAIN
     Route: 048
  2. DIAZEPAM. [Suspect]
     Active Substance: DIAZEPAM
     Indication: PAIN
     Route: 048
     Dates: start: 2008, end: 201605
  3. DIAZEPAM. [Concomitant]
     Active Substance: DIAZEPAM
     Indication: AGITATION
     Dosage: HALF TABLET AT NIGHT
     Route: 048
     Dates: start: 2007
  4. DIAZEPAM. [Concomitant]
     Active Substance: DIAZEPAM
     Indication: INSOMNIA
     Dosage: AT NIGHT
     Route: 048
     Dates: start: 2011
  5. INDAPAMIDE. [Concomitant]
     Active Substance: INDAPAMIDE
     Indication: BLOOD PRESSURE ABNORMAL
     Dosage: IN THE MORNING
     Route: 048
     Dates: start: 2000
  6. CODEINE [Concomitant]
     Active Substance: CODEINE
     Indication: PAIN
     Route: 048
     Dates: start: 2011
  7. CILASTATIN [Concomitant]
     Active Substance: CILASTATIN
     Indication: BLOOD CHOLESTEROL
     Route: 048
     Dates: start: 2010
  8. HUMIRA [Suspect]
     Active Substance: ADALIMUMAB
     Route: 058
  9. AMITRIPTYLINE [Concomitant]
     Active Substance: AMITRIPTYLINE
     Indication: FIBROMYALGIA
     Dosage: AT NIGHT
     Route: 048
     Dates: start: 2000
  10. DIAZEPAM. [Concomitant]
     Active Substance: DIAZEPAM
     Indication: RELAXATION THERAPY
  11. DIAZEPAM. [Concomitant]
     Active Substance: DIAZEPAM
     Indication: ANXIETY
  12. INDAPAMIDE. [Concomitant]
     Active Substance: INDAPAMIDE
     Indication: HYPERTENSION
  13. CORTICOID [Concomitant]
     Active Substance: UNSPECIFIED INGREDIENT
     Indication: ARTHRITIS
     Route: 048
     Dates: start: 1994
  14. TYLEX [Concomitant]
     Dosage: EVERY SIX HOURS
     Route: 048
  15. HUMIRA [Suspect]
     Active Substance: ADALIMUMAB
     Route: 058
  16. AZULFIDINE [Concomitant]
     Active Substance: SULFASALAZINE
     Indication: RHEUMATIC DISORDER
  17. AZULFIDINE [Concomitant]
     Active Substance: SULFASALAZINE
     Indication: INFLAMMATION
  18. HUMIRA [Suspect]
     Active Substance: ADALIMUMAB
     Indication: RHEUMATOID ARTHRITIS
     Route: 058
     Dates: start: 20090101, end: 201309
  19. AZULFIDINE [Concomitant]
     Active Substance: SULFASALAZINE
     Indication: ARTHRITIS
  20. CODEINE [Concomitant]
     Active Substance: CODEINE
     Indication: SPINAL DISORDER
     Route: 048
     Dates: start: 201507, end: 201606
  21. CALCIUM BICARBONATE [Concomitant]
     Active Substance: CALCIUM BICARBONATE
     Indication: BONE DISORDER
     Route: 048
     Dates: start: 2004
  22. HUMIRA [Suspect]
     Active Substance: ADALIMUMAB
     Route: 058
     Dates: start: 201401
  23. PREDNISONE. [Suspect]
     Active Substance: PREDNISONE
     Indication: ARTHRITIS
     Dosage: IN THE MORNING
     Route: 048
  24. PROPRANOLOL [Concomitant]
     Active Substance: PROPRANOLOL HYDROCHLORIDE
     Indication: HYPERTENSION
     Route: 048
     Dates: start: 2008
  25. AZULFIDINE [Concomitant]
     Active Substance: SULFASALAZINE
     Indication: RHEUMATOID ARTHRITIS
     Route: 048
     Dates: start: 2004
  26. CALCIUM ALENDRONATE [Concomitant]
     Indication: MINERAL SUPPLEMENTATION
     Route: 048
  27. VITAMIN B3 [Concomitant]
     Active Substance: NIACIN
     Indication: VITAMIN SUPPLEMENTATION
  28. INDAPAMIDE. [Concomitant]
     Active Substance: INDAPAMIDE
     Indication: DIURETIC THERAPY
  29. FLUOXETINE [Concomitant]
     Active Substance: FLUOXETINE HYDROCHLORIDE
     Indication: ANXIETY
     Route: 048
  30. POLIMAIS CALCINUTRI D [Concomitant]
     Indication: ARTHROPATHY
     Dosage: 1 TABLET IN MORNING; 1 TABLET AT NIGHT
     Route: 048
     Dates: start: 2013, end: 20200910
  31. AMITRIPTYLINE [Concomitant]
     Active Substance: AMITRIPTYLINE
     Indication: MYALGIA
     Route: 048
     Dates: start: 2008
  32. OSCAL D [Concomitant]
     Active Substance: CALCIUM CARBONATE\CHOLECALCIFEROL
     Indication: BONE DISORDER
     Route: 048
  33. PROPRANOLOL [Concomitant]
     Active Substance: PROPRANOLOL HYDROCHLORIDE
     Indication: HEART RATE INCREASED
     Route: 048
  34. NATRILIX [Concomitant]
     Active Substance: INDAPAMIDE
     Indication: HYPERTENSION
     Route: 048
  35. TYLEX [Concomitant]
     Indication: PAIN
     Dosage: CODEINE 30MG/PARACETAMOL 80MG, 1 IN 24 H
     Route: 048
  36. PREDNISONE. [Suspect]
     Active Substance: PREDNISONE
     Indication: RHEUMATOID ARTHRITIS
     Route: 048
     Dates: start: 1998
  37. INDAPAMIDE. [Concomitant]
     Active Substance: INDAPAMIDE
     Indication: BLOOD PRESSURE MEASUREMENT
     Route: 048
  38. OSTEOFORM [Concomitant]
     Indication: BONE DISORDER
     Route: 048
     Dates: start: 2007
  39. VITAMIN D [Concomitant]
     Active Substance: VITAMIN D NOS
     Indication: BONE DISORDER
     Route: 048
     Dates: start: 2004
  40. MORPHINE [Suspect]
     Active Substance: MORPHINE
     Indication: SPINAL PAIN
     Route: 048
     Dates: start: 201101, end: 201104
  41. DIAZEPAM. [Concomitant]
     Active Substance: DIAZEPAM
     Indication: SEDATIVE THERAPY
  42. DIAZEPAM. [Concomitant]
     Active Substance: DIAZEPAM
     Indication: SLEEP DISORDER
  43. OSCAL D [Concomitant]
     Active Substance: CALCIUM CARBONATE\CHOLECALCIFEROL
     Indication: OSTEOPENIA
  44. PROPRANOLOL [Concomitant]
     Active Substance: PROPRANOLOL HYDROCHLORIDE
     Indication: CARDIAC DISORDER
     Dosage: 80MG IN THE MORNING; 80MG AT NIGHT
     Route: 048
  45. OMEPRAZOLE. [Concomitant]
     Active Substance: OMEPRAZOLE
     Indication: GASTRIC DISORDER
     Route: 048
     Dates: start: 1989
  46. SIMVASTATIN. [Concomitant]
     Active Substance: SIMVASTATIN
     Indication: BLOOD CHOLESTEROL INCREASED
     Dosage: AT NIGHT
     Route: 048
     Dates: start: 2006, end: 20200910
  47. ALENDRONATE [Concomitant]
     Active Substance: ALENDRONATE SODIUM
     Indication: BONE DISORDER
     Route: 048
     Dates: start: 2004
  48. DOPAMINA [Concomitant]
     Indication: BLOOD PRESSURE MEASUREMENT
     Route: 048
     Dates: start: 2009
  49. SULFASALAZINE. [Concomitant]
     Active Substance: SULFASALAZINE
     Indication: ARTHRITIS
     Dosage: 80MG IN THE MORNING; 80MG AT NIGHT
     Route: 048

REACTIONS (36)
  - Intervertebral disc degeneration [Recovered/Resolved]
  - Hunger [Not Recovered/Not Resolved]
  - Decreased appetite [Recovering/Resolving]
  - Overweight [Not Recovered/Not Resolved]
  - Inflammation [Unknown]
  - Fall [Recovered/Resolved]
  - Oropharyngeal pain [Recovered/Resolved]
  - Weight increased [Not Recovered/Not Resolved]
  - Cough [Recovered/Resolved]
  - Blood cholesterol increased [Not Recovered/Not Resolved]
  - Nausea [Recovered/Resolved]
  - Asthenia [Recovered/Resolved]
  - Influenza [Recovered/Resolved]
  - Spinal pain [Not Recovered/Not Resolved]
  - Decreased appetite [Recovered/Resolved]
  - Depression [Not Recovered/Not Resolved]
  - Stress [Unknown]
  - Injection site haematoma [Not Recovered/Not Resolved]
  - Gait disturbance [Unknown]
  - Injection site discolouration [Not Recovered/Not Resolved]
  - Spinal pain [Not Recovered/Not Resolved]
  - Headache [Recovering/Resolving]
  - Pain [Unknown]
  - Bone disorder [Not Recovered/Not Resolved]
  - Anxiety [Not Recovered/Not Resolved]
  - Spinal pain [Unknown]
  - Vomiting [Recovered/Resolved]
  - Spinal osteoarthritis [Unknown]
  - Spinal operation [Recovering/Resolving]
  - Increased upper airway secretion [Recovered/Resolved]
  - Weight loss poor [Not Recovered/Not Resolved]
  - Memory impairment [Not Recovered/Not Resolved]
  - Intervertebral disc compression [Not Recovered/Not Resolved]
  - Balance disorder [Unknown]
  - Weight decreased [Unknown]
  - Nausea [Recovering/Resolving]

NARRATIVE: CASE EVENT DATE: 2010
